FAERS Safety Report 19828679 (Version 2)
Quarter: 2021Q4

REPORT INFORMATION
  Report Type: Report from Study
  Country: JP (occurrence: JP)
  Receive Date: 20210914
  Receipt Date: 20211029
  Transmission Date: 20220303
  Serious: Yes (Hospitalization)
  Sender: FDA-Public Use
  Company Number: JP-MERCK HEALTHCARE KGAA-9245184

PATIENT
  Age: 71 Year
  Sex: Male
  Weight: 55 kg

DRUGS (17)
  1. BAVENCIO [Suspect]
     Active Substance: AVELUMAB
     Indication: Metastatic renal cell carcinoma
     Dosage: ADMINISTRATION RATE: 100 ML/HR.
     Route: 041
     Dates: start: 20210318, end: 20210318
  2. BAVENCIO [Suspect]
     Active Substance: AVELUMAB
     Dosage: ADMINISTRATION RATE: 100 ML/HR.
     Route: 041
     Dates: start: 20210401, end: 20210401
  3. BAVENCIO [Suspect]
     Active Substance: AVELUMAB
     Dosage: ADMINISTRATION RATE: 100 ML/HR.
     Route: 041
     Dates: start: 20210415, end: 20210415
  4. BAVENCIO [Suspect]
     Active Substance: AVELUMAB
     Dosage: ADMINISTRATION RATE: 100 ML/HR.
     Route: 041
     Dates: start: 20210430, end: 20210430
  5. BAVENCIO [Suspect]
     Active Substance: AVELUMAB
     Dosage: ADMINISTRATION RATE: 100 ML/HR.
     Route: 041
     Dates: start: 20210514, end: 20210514
  6. INLYTA [Suspect]
     Active Substance: AXITINIB
     Indication: Metastatic renal cell carcinoma
     Route: 048
     Dates: start: 20210318, end: 20210513
  7. INLYTA [Suspect]
     Active Substance: AXITINIB
     Route: 048
     Dates: start: 20210514, end: 20210617
  8. ACETAMINOPHEN [Concomitant]
     Active Substance: ACETAMINOPHEN
     Indication: Premedication
     Route: 048
     Dates: start: 20210318, end: 20210318
  9. ACETAMINOPHEN [Concomitant]
     Active Substance: ACETAMINOPHEN
     Route: 048
     Dates: start: 20210401, end: 20210401
  10. ACETAMINOPHEN [Concomitant]
     Active Substance: ACETAMINOPHEN
     Route: 048
     Dates: start: 20210415, end: 20210415
  11. ACETAMINOPHEN [Concomitant]
     Active Substance: ACETAMINOPHEN
     Route: 048
     Dates: start: 20210430, end: 20210430
  12. ACETAMINOPHEN [Concomitant]
     Active Substance: ACETAMINOPHEN
     Route: 048
     Dates: start: 20210514, end: 20210514
  13. DIPHENHYDRAMINE [Concomitant]
     Active Substance: DIPHENHYDRAMINE
     Indication: Premedication
     Route: 048
     Dates: start: 20210318, end: 20210318
  14. DIPHENHYDRAMINE [Concomitant]
     Active Substance: DIPHENHYDRAMINE
     Route: 048
     Dates: start: 20210401, end: 20210401
  15. DIPHENHYDRAMINE [Concomitant]
     Active Substance: DIPHENHYDRAMINE
     Route: 048
     Dates: start: 20210415, end: 20210415
  16. DIPHENHYDRAMINE [Concomitant]
     Active Substance: DIPHENHYDRAMINE
     Route: 048
     Dates: start: 20210430, end: 20210430
  17. DIPHENHYDRAMINE [Concomitant]
     Active Substance: DIPHENHYDRAMINE
     Route: 048
     Dates: start: 20210514, end: 20210514

REACTIONS (2)
  - Aortic dissection [Recovered/Resolved]
  - Hypothyroidism [Recovered/Resolved]

NARRATIVE: CASE EVENT DATE: 20210603
